FAERS Safety Report 5664902-0 (Version None)
Quarter: 2008Q1

REPORT INFORMATION
  Report Type: 
  Country: None (occurrence: None)
  Receive Date: 20080314
  Receipt Date: 20080303
  Transmission Date: 20080703
  Serious: Yes (Hospitalization)
  Sender: FDA-Public Use
  Company Number: FR-PFIZER INC-2008019302

PATIENT
  Sex: Female

DRUGS (14)
  1. LOGIFLOX [Suspect]
     Indication: URINARY TRACT INFECTION
     Dosage: TEXT: 1DF
     Route: 048
     Dates: start: 20070312, end: 20070315
  2. BACTRIM [Suspect]
     Indication: URINARY TRACT INFECTION
     Dosage: TEXT:1DF
     Route: 048
     Dates: start: 20070323, end: 20070323
  3. PREVISCAN [Suspect]
     Dosage: TEXT:0.5DF
     Route: 048
     Dates: start: 20070112, end: 20070328
  4. INIPOMP [Suspect]
     Indication: GASTRODUODENAL ULCER
     Route: 048
     Dates: start: 20070112, end: 20070328
  5. OROKEN [Concomitant]
     Route: 048
     Dates: start: 20070112, end: 20070324
  6. PARACETAMOL [Concomitant]
     Route: 048
     Dates: start: 20070112, end: 20070325
  7. SUCRALFATE [Concomitant]
     Route: 048
     Dates: start: 20070112, end: 20070325
  8. SPIRONOLACTONE [Concomitant]
     Route: 048
     Dates: start: 20070112, end: 20070329
  9. MESALAMINE [Concomitant]
     Route: 048
     Dates: start: 20070112, end: 20070329
  10. BETASERC [Concomitant]
     Route: 048
     Dates: start: 20070112, end: 20070329
  11. NOVONORM [Concomitant]
     Route: 048
  12. ANAFRANIL [Concomitant]
     Route: 048
  13. TEMESTA [Concomitant]
     Route: 048
  14. GENTALLINE [Concomitant]
     Route: 030
     Dates: start: 20070312, end: 20070318

REACTIONS (1)
  - FIXED ERUPTION [None]
